FAERS Safety Report 9712344 (Version 1)
Quarter: 2013Q4

REPORT INFORMATION
  Report Type: Spontaneous
  Country: US (occurrence: US)
  Receive Date: 20131126
  Receipt Date: 20131126
  Transmission Date: 20140711
  Serious: No
  Sender: FDA-Public Use
  Company Number: US-BRISTOL-MYERS SQUIBB COMPANY-19165190

PATIENT
  Age: 58 Year
  Sex: Male
  Weight: 93.42 kg

DRUGS (3)
  1. BYDUREON [Suspect]
     Indication: TYPE 2 DIABETES MELLITUS
     Dates: start: 20130728
  2. NOVOLOG [Concomitant]
  3. INSULIN 70/30 [Concomitant]

REACTIONS (1)
  - Injection site extravasation [Recovered/Resolved]
